FAERS Safety Report 12859312 (Version 3)
Quarter: 2017Q1

REPORT INFORMATION
  Report Type: Report from Study
  Country: BR (occurrence: BR)
  Receive Date: 20161018
  Receipt Date: 20170111
  Transmission Date: 20170428
  Serious: Yes (Other)
  Sender: FDA-Public Use
  Company Number: PHHY2016BR142071

PATIENT
  Sex: Male
  Weight: 50 kg

DRUGS (4)
  1. SANDOSTATIN LAR DEPOT [Suspect]
     Active Substance: OCTREOTIDE ACETATE
     Indication: CARCINOID SYNDROME
     Dosage: 30 MG, QMO (EVERY 28 DAYS)
     Route: 030
     Dates: start: 201305
  2. AFINITOR [Suspect]
     Active Substance: EVEROLIMUS
     Indication: HEPATIC CANCER
     Dosage: 10 MG, QD (1 TABLET A DAY)
     Route: 048
     Dates: start: 201311, end: 201411
  3. SANDOSTATIN LAR DEPOT [Suspect]
     Active Substance: OCTREOTIDE ACETATE
     Indication: HEPATIC CANCER
  4. AFINITOR [Suspect]
     Active Substance: EVEROLIMUS
     Indication: CARCINOID SYNDROME
     Dosage: 5 MG, QD
     Route: 048

REACTIONS (16)
  - Sluggishness [Recovered/Resolved]
  - Ascites [Recovering/Resolving]
  - Pneumonitis [Recovered/Resolved]
  - Abdominal discomfort [Recovered/Resolved]
  - Abdominal pain [Recovered/Resolved]
  - Product use issue [Unknown]
  - Cardiac failure [Unknown]
  - Tricuspid valve disease [Not Recovered/Not Resolved]
  - Weight decreased [Recovered/Resolved]
  - Nausea [Recovered/Resolved]
  - Glucose tolerance impaired [Recovering/Resolving]
  - Eating disorder [Unknown]
  - Pain [Unknown]
  - Vomiting [Recovered/Resolved]
  - Nephrolithiasis [Recovered/Resolved]
  - Malaise [Unknown]

NARRATIVE: CASE EVENT DATE: 2014
